FAERS Safety Report 7319691-0 (Version None)
Quarter: 2011Q1

REPORT INFORMATION
  Report Type: 
  Country: None (occurrence: None)
  Receive Date: 20110223
  Receipt Date: 20110223
  Transmission Date: 20110831
  Serious: Yes (Other)
  Sender: FDA-Public Use
  Company Number: None

PATIENT
  Sex: Female
  Weight: 97.5234 kg

DRUGS (4)
  1. WELLBUTRIN XL [Suspect]
     Indication: DEPRESSION
     Dosage: CURRENT DOSE 150MG XL 1 MORNING ORAL (PRIOR TO 12/18/2006)
     Route: 048
  2. WELLBUTRIN XL [Suspect]
     Indication: BIPOLAR II DISORDER
     Dosage: CURRENT DOSE 150MG XL 1 MORNING ORAL (PRIOR TO 12/18/2006)
     Route: 048
  3. WELLBUTRIN XL [Suspect]
     Indication: BIPOLAR II DISORDER
     Dosage: CURRENT DOSE 150MG XL 1 MORNING ORAL (PRIOR TO 12/28/2006)
     Route: 048
  4. WELLBUTRIN XL [Suspect]
     Indication: DEPRESSION
     Dosage: CURRENT DOSE 150MG XL 1 MORNING ORAL (PRIOR TO 12/28/2006)
     Route: 048

REACTIONS (8)
  - ASTHENIA [None]
  - IRRITABILITY [None]
  - APATHY [None]
  - DEPRESSION [None]
  - CRYING [None]
  - HEADACHE [None]
  - INSOMNIA [None]
  - SUICIDAL IDEATION [None]
